FAERS Safety Report 10034833 (Version 2)
Quarter: 2014Q1

REPORT INFORMATION
  Report Type: Spontaneous
  Country: RW (occurrence: RW)
  Receive Date: 20140325
  Receipt Date: 20140325
  Transmission Date: 20141002
  Serious: Yes (Other)
  Sender: FDA-Public Use
  Company Number: RW-UCBSA-085657

PATIENT
  Age: 39 Year
  Sex: Female
  Weight: 70 kg

DRUGS (4)
  1. KEPPRA [Suspect]
     Indication: PARTIAL SEIZURES
     Route: 048
     Dates: start: 20111105
  2. KEPPRA [Suspect]
     Indication: PARTIAL SEIZURES
     Route: 048
     Dates: start: 201401
  3. TEGRETOL [Concomitant]
     Indication: EPILEPSY
     Route: 048
     Dates: start: 20071217
  4. VALIUM [Concomitant]
     Indication: EPILEPSY
     Route: 048
     Dates: start: 20091216, end: 20130320

REACTIONS (4)
  - Infertility female [Unknown]
  - Libido decreased [Unknown]
  - Weight increased [Unknown]
  - Overdose [Unknown]
